FAERS Safety Report 15210564 (Version 1)
Quarter: 2018Q3

REPORT INFORMATION
  Report Type: Spontaneous
  Country: US (occurrence: US)
  Receive Date: 20180629
  Receipt Date: 20180629
  Transmission Date: 20181010
  Serious: Yes (Disabling, Other)
  Sender: FDA-Public Use
  Company Number: None

PATIENT
  Age: 53 Year
  Sex: Male
  Weight: 80.1 kg

DRUGS (7)
  1. TRAMADOL. [Concomitant]
     Active Substance: TRAMADOL
  2. FLUTICASONE PROPINATE NASAL SPRAY [Concomitant]
  3. DIAZAPHAM [Concomitant]
  4. ONE A DAY FOR MEN [Concomitant]
  5. FLUTICASONE PROPINATE [Suspect]
     Active Substance: FLUTICASONE PROPIONATE
     Indication: HYPERSENSITIVITY
     Dosage: ?          OTHER STRENGTH:16G;QUANTITY:120 SPRAY(S);OTHER ROUTE:NASAL SPRAY?
     Dates: start: 20180406, end: 20180615
  6. LITHIUM. [Concomitant]
     Active Substance: LITHIUM
  7. OMEGA 3 FISH OIL [Concomitant]
     Active Substance: FISH OIL\OMEGA-3 FATTY ACIDS

REACTIONS (3)
  - Product use issue [None]
  - Nasal disorder [None]
  - Nervous system disorder [None]

NARRATIVE: CASE EVENT DATE: 20180504
